FAERS Safety Report 24326385 (Version 2)
Quarter: 2024Q4

REPORT INFORMATION
  Report Type: Report from Study
  Country: CA (occurrence: CA)
  Receive Date: 20240917
  Receipt Date: 20241018
  Transmission Date: 20250114
  Serious: Yes (Other)
  Sender: SANDOZ
  Company Number: CA-SANDOZ-SDZ2023CA033881

PATIENT
  Sex: Female
  Weight: 17.73 kg

DRUGS (1)
  1. HYRIMOZ [Suspect]
     Active Substance: ADALIMUMAB-ADAZ
     Indication: Ankylosing spondylitis
     Dosage: 40 MG, Q2W
     Route: 058
     Dates: start: 20230704

REACTIONS (5)
  - Psoriatic arthropathy [Unknown]
  - General physical health deterioration [Unknown]
  - Swelling [Unknown]
  - Peripheral swelling [Unknown]
  - Joint swelling [Unknown]
